FAERS Safety Report 21787132 (Version 1)
Quarter: 2022Q4

REPORT INFORMATION
  Report Type: Report from Study
  Country: US (occurrence: US)
  Receive Date: 20221228
  Receipt Date: 20221228
  Transmission Date: 20230112
  Serious: No
  Sender: FDA-Public Use
  Company Number: US-ABBVIE-4203068

PATIENT
  Sex: Female

DRUGS (1)
  1. SKYRIZI [Suspect]
     Active Substance: RISANKIZUMAB-RZAA
     Indication: Psoriasis
     Dosage: WEEK 0, STRENGTH: 150 MG
     Route: 058
     Dates: start: 20221103

REACTIONS (4)
  - Chills [Not Recovered/Not Resolved]
  - Feeling hot [Unknown]
  - Psoriasis [Unknown]
  - Anxiety [Unknown]
